FAERS Safety Report 6886082-6 (Version None)
Quarter: 2010Q3

REPORT INFORMATION
  Report Type: 
  Country: None (occurrence: None)
  Receive Date: 20100729
  Receipt Date: 20080829
  Transmission Date: 20110219
  Serious: No
  Sender: FDA-Public Use
  Company Number: US-PFIZER INC-2008074057

PATIENT
  Sex: Female

DRUGS (3)
  1. QUINAPRIL HCL [Suspect]
  2. LORAZEPAM [Suspect]
  3. ACCUPRIL [Concomitant]

REACTIONS (3)
  - CHILLS [None]
  - DYSURIA [None]
  - LIP SWELLING [None]
